FAERS Safety Report 11552675 (Version 1)
Quarter: 2015Q3

REPORT INFORMATION
  Report Type: Spontaneous
  Country: US (occurrence: None)
  Receive Date: 20150924
  Receipt Date: 20150924
  Transmission Date: 20151125
  Serious: Yes (Life-Threatening, Hospitalization)
  Sender: FDA-Public Use
  Company Number: None

PATIENT
  Age: 46 Year
  Sex: Male
  Weight: 118.8 kg

DRUGS (1)
  1. HYDROCHLOROTHIAZIDE/LISINOPRIL [Suspect]
     Active Substance: HYDROCHLOROTHIAZIDE\LISINOPRIL
     Indication: HYPERTENSION
     Dosage: 12.5/10 MG
     Route: 048
     Dates: start: 20150824, end: 20150826

REACTIONS (5)
  - Oropharyngeal swelling [None]
  - Throat tightness [None]
  - Dysphagia [None]
  - Foreign body [None]
  - Dyspnoea [None]

NARRATIVE: CASE EVENT DATE: 20150826
